FAERS Safety Report 6803908-2 (Version None)
Quarter: 2010Q2

REPORT INFORMATION
  Report Type: 
  Country: None (occurrence: None)
  Receive Date: 20100628
  Receipt Date: 20100622
  Transmission Date: 20101027
  Serious: Yes (Other)
  Sender: FDA-Public Use
  Company Number: PHHY2010US40589

PATIENT
  Sex: Male

DRUGS (4)
  1. PROLEUKIN [Suspect]
     Dosage: UNK
  2. LIPITOR [Suspect]
     Dosage: UNK
  3. PROBIOTICA [Concomitant]
  4. MULTI-VITAMINS [Concomitant]

REACTIONS (5)
  - BLOOD POTASSIUM DECREASED [None]
  - BLOOD PRESSURE INCREASED [None]
  - INCORRECT DOSE ADMINISTERED [None]
  - METASTASES TO CENTRAL NERVOUS SYSTEM [None]
  - METASTATIC RENAL CELL CARCINOMA [None]
